FAERS Safety Report 5135080-1 (Version None)
Quarter: 2006Q4

REPORT INFORMATION
  Report Type: 
  Country: None (occurrence: None)
  Receive Date: 20060831
  Receipt Date: 20060510
  Transmission Date: 20070319
  Serious: Yes (Other)
  Sender: FDA-Public Use
  Company Number: 2006063726

PATIENT
  Age: 64 Year
  Sex: Male
  Weight: 104.3273 kg

DRUGS (2)
  1. CAVERJECT [Suspect]
     Indication: ERECTILE DYSFUNCTION
     Dosage: 10 MCG (20 MCG), PARENTERAL
     Route: 051
     Dates: start: 20060508
  2. DRUGS USED IN ERECTILE DYSFUNCTION (OTHER UROLOGICALS, INCL ANTISPASMO [Concomitant]

REACTIONS (3)
  - ERECTION INCREASED [None]
  - PAIN [None]
  - PENIS DISORDER [None]
